FAERS Safety Report 10081248 (Version 2)
Quarter: 2014Q2

REPORT INFORMATION
  Report Type: Spontaneous
  Country: US (occurrence: US)
  Receive Date: 20140416
  Receipt Date: 20140422
  Transmission Date: 20141212
  Serious: No
  Sender: FDA-Public Use
  Company Number: US-PFIZER INC-2014103751

PATIENT
  Age: 67 Year
  Sex: Female
  Weight: 56.69 kg

DRUGS (21)
  1. LYRICA [Suspect]
     Indication: PARTIAL SEIZURES
     Dosage: 400MG
     Route: 048
     Dates: end: 201403
  2. TRICOR [Concomitant]
     Indication: BLOOD TRIGLYCERIDES INCREASED
     Dosage: 145 MG, 1X/DAY
  3. SYNTHROID [Concomitant]
     Indication: HYPOTHYROIDISM
     Dosage: 0.112MG FOR 4 DAYS OF THE WEEK
     Dates: start: 2008
  4. SYNTHROID [Concomitant]
     Dosage: 0.125 MG, 1X/DAY FOR 3 DAYS
  5. FLUTICASONE [Concomitant]
     Dosage: UNK
     Route: 055
  6. KEFLEX [Concomitant]
     Indication: INFECTION PROPHYLAXIS
     Dosage: 250 MG, 1X/DAY
  7. PANTOPRAZOLE [Concomitant]
     Indication: DYSPEPSIA
     Dosage: 40 MG, 1X/DAY
  8. ASA [Concomitant]
     Indication: CARDIOVASCULAR EVENT PROPHYLAXIS
     Dosage: 81 MG, 1X/DAY
  9. CENTRUM SILVER [Concomitant]
     Dosage: 1 DF, 1X/DAY
  10. CITRACAL [Concomitant]
     Dosage: 630 MG, DAILY
  11. VITAMIN D3 [Concomitant]
     Dosage: 2000 IU, DAILY
  12. GLUCOSAMINE W/CHONDROITIN SULFATES [Concomitant]
     Dosage: DAILY
  13. DOCUSATE SODIUM [Concomitant]
     Dosage: 300 MG, DAILY
  14. COENZYME Q10 [Concomitant]
     Dosage: DAILY
  15. AMBIEN [Concomitant]
     Dosage: 5 MG, AS NEEDED (SLEEP)
  16. ZYRTEC [Concomitant]
     Indication: SEASONAL ALLERGY
     Dosage: 10 MG
  17. EVISTA [Concomitant]
     Indication: PROPHYLAXIS
     Dosage: 60MG
  18. FISH OIL [Concomitant]
     Dosage: 2000 MG, DAILY
  19. MOM [Concomitant]
     Dosage: PRN
  20. VITAMIN B12 [Concomitant]
     Dosage: SL DAILY
  21. ACIDOPHILUS [Concomitant]
     Indication: LACTOSE INTOLERANCE
     Dosage: PRN

REACTIONS (2)
  - Drug ineffective [Unknown]
  - Dizziness [Unknown]
